FAERS Safety Report 4963216-1 (Version None)
Quarter: 2006Q1

REPORT INFORMATION
  Report Type: 
  Country: None (occurrence: None)
  Receive Date: 20060331
  Receipt Date: 20060323
  Transmission Date: 20060701
  Serious: No
  Sender: FDA-Public Use
  Company Number: 231535K06USA

PATIENT
  Age: 41 Year
  Sex: Female

DRUGS (4)
  1. REBIF [Suspect]
     Indication: MULTIPLE SCLEROSIS
     Dosage: SEE IMAGE
     Route: 058
     Dates: start: 20050308, end: 20060101
  2. REBIF [Suspect]
     Indication: MULTIPLE SCLEROSIS
     Dosage: SEE IMAGE
     Route: 058
     Dates: start: 20060323
  3. REPLAX (ELETRIPAN HYDROBROMIDE) [Concomitant]
  4. SOLU-MEDROL [Concomitant]

REACTIONS (4)
  - CONDITION AGGRAVATED [None]
  - HEADACHE [None]
  - SYNCOPE [None]
  - WHITE BLOOD CELL COUNT DECREASED [None]
